FAERS Safety Report 4554231-0 (Version None)
Quarter: 2005Q1

REPORT INFORMATION
  Report Type: 
  Country: None (occurrence: None)
  Receive Date: 20050118
  Receipt Date: 20050113
  Transmission Date: 20050727
  Serious: Yes (Other)
  Sender: FDA-Public Use
  Company Number: PHBS2005CH00832

PATIENT
  Age: 10 Year
  Sex: Female

DRUGS (1)
  1. TRILEPTAL [Suspect]
     Indication: EPILEPSY
     Dosage: 1350 MG/D
     Route: 065
     Dates: start: 19971002, end: 20040701

REACTIONS (2)
  - GROWTH RETARDATION [None]
  - THYROXINE DECREASED [None]
